FAERS Safety Report 16823977 (Version 2)
Quarter: 2020Q3

REPORT INFORMATION
  Report Type: Report from Study
  Country: CZ (occurrence: CZ)
  Receive Date: 20190918
  Receipt Date: 20200703
  Transmission Date: 20201102
  Serious: Yes (Death)
  Sender: FDA-Public Use
  Company Number: CZ-INCYTE CORPORATION-2019IN009138

PATIENT

DRUGS (1)
  1. JAKAVI [Suspect]
     Active Substance: RUXOLITINIB
     Indication: PRIMARY MYELOFIBROSIS
     Dosage: 20 MG, BID
     Route: 065
     Dates: start: 20150112, end: 20160223

REACTIONS (2)
  - Primary myelofibrosis [Fatal]
  - Drug ineffective [Unknown]
